FAERS Safety Report 9720413 (Version 6)
Quarter: 2014Q2

REPORT INFORMATION
  Report Type: Spontaneous
  Country: JP (occurrence: JP)
  Receive Date: 20131129
  Receipt Date: 20140626
  Transmission Date: 20141212
  Serious: Yes (Death, Hospitalization)
  Sender: FDA-Public Use
  Company Number: JP-JNJFOC-20120511440

PATIENT
  Age: 67 Year
  Sex: Female
  Weight: 52 kg

DRUGS (9)
  1. SIMPONI [Suspect]
     Indication: RHEUMATOID ARTHRITIS
     Route: 058
     Dates: start: 20120312, end: 20120312
  2. SIMPONI [Suspect]
     Indication: RHEUMATOID ARTHRITIS
     Route: 058
     Dates: start: 20120409, end: 20120409
  3. ASPIRIN [Concomitant]
     Route: 065
     Dates: start: 20120110, end: 20120617
  4. BAYASPIRIN [Concomitant]
     Route: 048
  5. PREDONINE [Concomitant]
     Indication: RHEUMATOID ARTHRITIS
     Route: 048
     Dates: start: 20120110, end: 20120617
  6. THYRADIN [Concomitant]
     Indication: HYPOTHYROIDISM
     Route: 048
     Dates: start: 20120110, end: 20120622
  7. ATELEC [Concomitant]
     Indication: HYPERTENSION
     Route: 048
     Dates: start: 20120110, end: 20120617
  8. PARIET [Concomitant]
     Indication: GASTROOESOPHAGEAL REFLUX DISEASE
     Route: 048
     Dates: start: 20120110, end: 20120617
  9. FOSAMAC [Concomitant]
     Indication: OSTEOPOROSIS
     Route: 048
     Dates: start: 20120110, end: 20120617

REACTIONS (4)
  - Interstitial lung disease [Fatal]
  - Pseudomembranous colitis [Not Recovered/Not Resolved]
  - Organising pneumonia [Recovering/Resolving]
  - Protein-losing gastroenteropathy [Not Recovered/Not Resolved]
